FAERS Safety Report 4679131-7 (Version None)
Quarter: 2005Q2

REPORT INFORMATION
  Report Type: 
  Country: None (occurrence: None)
  Receive Date: 20050527
  Receipt Date: 20050209
  Transmission Date: 20051028
  Serious: No
  Sender: FDA-Public Use
  Company Number: PHEH2005US01859

PATIENT
  Age: 37 Year
  Sex: Female

DRUGS (2)
  1. ZELNORM [Suspect]
     Dosage: ORAL
     Route: 048
     Dates: start: 20040801
  2. DEPAKOTE [Concomitant]

REACTIONS (1)
  - ALOPECIA [None]
